FAERS Safety Report 8573258 (Version 2)
Quarter: 2012Q4

REPORT INFORMATION
  Report Type: 
  Country: US (occurrence: US)
  Receive Date: 20120522
  Receipt Date: 20121102
  Transmission Date: 20130627
  Serious: Yes (Death, Other)
  Sender: FDA-Public Use
  Company Number: US-PFIZER INC-2012122497

PATIENT
  Age: 35 Year
  Sex: Male

DRUGS (4)
  1. CHANTIX [Suspect]
     Indication: SMOKING CESSATION THERAPY
     Dosage: UNK
     Dates: start: 20090603, end: 20090822
  2. TERBINAFINE [Concomitant]
     Indication: SKIN DISORDER
     Dosage: UNK
     Dates: start: 2008, end: 20090822
  3. CITALOPRAM [Concomitant]
     Indication: DEPRESSION
     Dosage: UNK
     Dates: start: 200811, end: 20090822
  4. VIAGRA [Concomitant]
     Indication: ERECTILE DYSFUNCTION
     Dosage: UNK
     Dates: start: 200811, end: 20090822

REACTIONS (2)
  - Completed suicide [Fatal]
  - Depression [Unknown]
